FAERS Safety Report 25638310 (Version 1)
Quarter: 2025Q3

REPORT INFORMATION
  Report Type: Spontaneous
  Country: EU (occurrence: EU)
  Receive Date: 20250804
  Receipt Date: 20250804
  Transmission Date: 20251020
  Serious: Yes (Life-Threatening, Other)
  Sender: MYLAN
  Company Number: EU-SA-2025SA202896

PATIENT
  Sex: Female

DRUGS (32)
  1. ISOTRETINOIN [Suspect]
     Active Substance: ISOTRETINOIN
     Indication: Neuroblastoma recurrent
     Dosage: 160 MG/M2, BID (DIVIDED INTO 2 EQUAL DOSES GIVEN ORALLY TWICE DAILY FOR 14 DAYS) (FOLLOWED BY)
  2. ISOTRETINOIN [Suspect]
     Active Substance: ISOTRETINOIN
     Indication: Metastasis
     Dosage: 160 MG/M2, BID (DIVIDED INTO 2 EQUAL DOSES GIVEN ORALLY TWICE DAILY FOR 14 DAYS) (FOLLOWED BY)
     Route: 048
  3. ISOTRETINOIN [Suspect]
     Active Substance: ISOTRETINOIN
     Dosage: 160 MG/M2, BID (DIVIDED INTO 2 EQUAL DOSES GIVEN ORALLY TWICE DAILY FOR 14 DAYS) (FOLLOWED BY)
     Route: 048
  4. ISOTRETINOIN [Suspect]
     Active Substance: ISOTRETINOIN
     Dosage: 160 MG/M2, BID (DIVIDED INTO 2 EQUAL DOSES GIVEN ORALLY TWICE DAILY FOR 14 DAYS) (FOLLOWED BY)
  5. FLUDARABINE [Suspect]
     Active Substance: FLUDARABINE PHOSPHATE
     Indication: Stem cell transplant
  6. FLUDARABINE [Suspect]
     Active Substance: FLUDARABINE PHOSPHATE
     Indication: Neuroblastoma recurrent
     Route: 065
  7. FLUDARABINE [Suspect]
     Active Substance: FLUDARABINE PHOSPHATE
     Indication: Metastasis
     Route: 065
  8. FLUDARABINE [Suspect]
     Active Substance: FLUDARABINE PHOSPHATE
  9. THYMOCYTE IMMUNE GLOBULIN NOS [Suspect]
     Active Substance: THYMOCYTE IMMUNE GLOBULIN NOS
     Indication: Stem cell transplant
  10. THYMOCYTE IMMUNE GLOBULIN NOS [Suspect]
     Active Substance: THYMOCYTE IMMUNE GLOBULIN NOS
     Indication: Neuroblastoma recurrent
     Route: 065
  11. THYMOCYTE IMMUNE GLOBULIN NOS [Suspect]
     Active Substance: THYMOCYTE IMMUNE GLOBULIN NOS
     Indication: Metastasis
     Route: 065
  12. THYMOCYTE IMMUNE GLOBULIN NOS [Suspect]
     Active Substance: THYMOCYTE IMMUNE GLOBULIN NOS
  13. THIOTEPA [Suspect]
     Active Substance: THIOTEPA
     Indication: Stem cell transplant
  14. THIOTEPA [Suspect]
     Active Substance: THIOTEPA
     Indication: Neuroblastoma recurrent
     Route: 065
  15. THIOTEPA [Suspect]
     Active Substance: THIOTEPA
     Indication: Metastasis
     Route: 065
  16. THIOTEPA [Suspect]
     Active Substance: THIOTEPA
  17. TREOSULFAN [Suspect]
     Active Substance: TREOSULFAN
     Indication: Stem cell transplant
     Dosage: 10 GRAM PER SQUARE METRE, QD (DAY -8, -7 AND -6)
  18. TREOSULFAN [Suspect]
     Active Substance: TREOSULFAN
     Indication: Neuroblastoma recurrent
     Dosage: 10 GRAM PER SQUARE METRE, QD (DAY -8, -7 AND -6)
     Route: 065
  19. TREOSULFAN [Suspect]
     Active Substance: TREOSULFAN
     Indication: Metastasis
     Dosage: 10 GRAM PER SQUARE METRE, QD (DAY -8, -7 AND -6)
     Route: 065
  20. TREOSULFAN [Suspect]
     Active Substance: TREOSULFAN
     Dosage: 10 GRAM PER SQUARE METRE, QD (DAY -8, -7 AND -6)
  21. MELPHALAN [Suspect]
     Active Substance: MELPHALAN
     Indication: Stem cell transplant
     Dosage: 70 MILLIGRAM/SQ. METER, QD (DAY -2, -1)
  22. MELPHALAN [Suspect]
     Active Substance: MELPHALAN
     Indication: Neuroblastoma recurrent
     Dosage: 70 MILLIGRAM/SQ. METER, QD (DAY -2, -1)
     Route: 065
  23. MELPHALAN [Suspect]
     Active Substance: MELPHALAN
     Indication: Metastasis
     Dosage: 70 MILLIGRAM/SQ. METER, QD (DAY -2, -1)
     Route: 065
  24. MELPHALAN [Suspect]
     Active Substance: MELPHALAN
     Dosage: 70 MILLIGRAM/SQ. METER, QD (DAY -2, -1)
  25. RITUXIMAB [Suspect]
     Active Substance: RITUXIMAB
     Indication: Neuroblastoma recurrent
  26. RITUXIMAB [Suspect]
     Active Substance: RITUXIMAB
     Indication: Metastasis
     Route: 065
  27. RITUXIMAB [Suspect]
     Active Substance: RITUXIMAB
     Route: 065
  28. RITUXIMAB [Suspect]
     Active Substance: RITUXIMAB
  29. DINUTUXIMAB BETA [Suspect]
     Active Substance: DINUTUXIMAB BETA
     Indication: Neuroblastoma recurrent
  30. DINUTUXIMAB BETA [Suspect]
     Active Substance: DINUTUXIMAB BETA
     Indication: Metastasis
     Route: 065
  31. DINUTUXIMAB BETA [Suspect]
     Active Substance: DINUTUXIMAB BETA
     Route: 065
  32. DINUTUXIMAB BETA [Suspect]
     Active Substance: DINUTUXIMAB BETA

REACTIONS (3)
  - Leukopenia [Unknown]
  - Neutropenia [Unknown]
  - Off label use [Unknown]
